FAERS Safety Report 15188439 (Version 1)
Quarter: 2018Q3

REPORT INFORMATION
  Report Type: Spontaneous
  Country: BR (occurrence: BR)
  Receive Date: 20180724
  Receipt Date: 20180724
  Transmission Date: 20181010
  Serious: Yes (Other)
  Sender: FDA-Public Use
  Company Number: BR-TORRENT-00004499

PATIENT
  Age: 68 Year
  Sex: Female
  Weight: 80 kg

DRUGS (5)
  1. VENLIFT OD [Suspect]
     Active Substance: VENLAFAXINE HYDROCHLORIDE
     Indication: MAJOR DEPRESSION
     Dosage: VELIFT OD 150 MG ONE CAPSULE DAILY
     Route: 048
  2. DIOVAN AMLO [Concomitant]
     Active Substance: AMLODIPINE\VALSARTAN
     Indication: HYPERTENSION
     Dosage: ONE TABLET DAILY
     Route: 048
     Dates: start: 2004
  3. OLANZAPINE. [Concomitant]
     Active Substance: OLANZAPINE
     Indication: MAJOR DEPRESSION
     Dosage: HALF A TABLET DAILY
     Route: 048
     Dates: start: 20180531, end: 20180710
  4. ANASTROZOLE. [Concomitant]
     Active Substance: ANASTROZOLE
     Indication: BREAST CANCER
     Dosage: UNKNOWN
     Dates: start: 201804
  5. ZETIA [Concomitant]
     Active Substance: EZETIMIBE
     Indication: BLOOD CHOLESTEROL INCREASED
     Dates: start: 2017

REACTIONS (5)
  - Memory impairment [Not Recovered/Not Resolved]
  - Headache [Unknown]
  - Breast cancer [Unknown]
  - Drug ineffective [Unknown]
  - Blood cholesterol increased [Unknown]

NARRATIVE: CASE EVENT DATE: 2014
